FAERS Safety Report 5737903-1 (Version None)
Quarter: 2008Q2

REPORT INFORMATION
  Report Type: 
  Country: None (occurrence: None)
  Receive Date: 20080512
  Receipt Date: 20080512
  Transmission Date: 20081010
  Serious: No
  Sender: FDA-Public Use
  Company Number: None

PATIENT
  Age: 54 Year
  Sex: Female

DRUGS (1)
  1. TYSABRI [Suspect]
     Dosage: 300MG    Q MONTH     IV
     Route: 042
     Dates: start: 20071001

REACTIONS (2)
  - HEADACHE [None]
  - URINARY TRACT INFECTION [None]
